FAERS Safety Report 20742200 (Version 2)
Quarter: 2022Q2

REPORT INFORMATION
  Report Type: Report from Study
  Country: CA (occurrence: CA)
  Receive Date: 20220423
  Receipt Date: 20220512
  Transmission Date: 20220720
  Serious: Yes (Other)
  Sender: FDA-Public Use
  Company Number: CA-NOVARTISPH-PHHY2018CA155058

PATIENT
  Age: 56 Year
  Sex: Female

DRUGS (6)
  1. ELTROMBOPAG OLAMINE [Suspect]
     Active Substance: ELTROMBOPAG OLAMINE
     Indication: Immune thrombocytopenia
     Dosage: 75 MG, QD
     Route: 048
     Dates: start: 20181027
  2. ELTROMBOPAG OLAMINE [Suspect]
     Active Substance: ELTROMBOPAG OLAMINE
     Dosage: 50 MG, QD
     Route: 048
  3. ELTROMBOPAG OLAMINE [Suspect]
     Active Substance: ELTROMBOPAG OLAMINE
     Dosage: UNK
     Route: 048
     Dates: start: 20200823
  4. IVIGLOB EX [Concomitant]
     Active Substance: HUMAN IMMUNOGLOBULIN G
     Indication: Chills
     Dosage: 100 MG, QD
     Route: 065
     Dates: start: 20181031
  5. IVIGLOB EX [Concomitant]
     Active Substance: HUMAN IMMUNOGLOBULIN G
     Indication: Hypotension
  6. PREDNISONE [Concomitant]
     Active Substance: PREDNISONE
     Indication: Product used for unknown indication
     Dosage: 20 MG
     Route: 065

REACTIONS (27)
  - Congenital thrombocyte disorder [Unknown]
  - Platelet count decreased [Recovering/Resolving]
  - Contusion [Unknown]
  - Petechiae [Unknown]
  - Immune thrombocytopenia [Unknown]
  - Disease recurrence [Unknown]
  - Constipation [Unknown]
  - Somnolence [Unknown]
  - Flatulence [Unknown]
  - Hunger [Unknown]
  - Platelet count abnormal [Unknown]
  - Hepatic steatosis [Unknown]
  - White blood cell count increased [Unknown]
  - Red blood cell count increased [Unknown]
  - Mean platelet volume increased [Unknown]
  - Neutrophil count decreased [Unknown]
  - Lymphocyte count decreased [Unknown]
  - Monocyte count decreased [Unknown]
  - Pruritus [Unknown]
  - Asthenia [Unknown]
  - Fatigue [Unknown]
  - Alopecia [Unknown]
  - Drug ineffective [Unknown]
  - Diarrhoea [Unknown]
  - Immune system disorder [Unknown]
  - Blood glucose abnormal [Unknown]
  - Infection [Unknown]

NARRATIVE: CASE EVENT DATE: 20181210
